FAERS Safety Report 5242283-4 (Version None)
Quarter: 2007Q1

REPORT INFORMATION
  Report Type: 
  Country: None (occurrence: None)
  Receive Date: 20070216
  Receipt Date: 20070216
  Transmission Date: 20070707
  Serious: Yes (Other)
  Sender: FDA-Public Use
  Company Number: None

PATIENT
  Sex: Male
  Weight: 82 kg

DRUGS (5)
  1. CYMBALTA [Suspect]
     Indication: DEPRESSION
     Dosage: 30 MG QAM PO
     Route: 048
     Dates: start: 20060101
  2. MIRTAZAPINE [Suspect]
     Indication: DEPRESSION
     Dosage: 15 MG QHS PO
     Route: 048
     Dates: start: 20070209, end: 20070214
  3. TYLENOL [Concomitant]
  4. BENADRYL [Concomitant]
  5. DISULFIRAM [Concomitant]

REACTIONS (5)
  - AGITATION [None]
  - ANXIETY [None]
  - INSOMNIA [None]
  - MENTAL STATUS CHANGES [None]
  - THINKING ABNORMAL [None]
